FAERS Safety Report 7563524-4 (Version None)
Quarter: 2011Q2

REPORT INFORMATION
  Report Type: 
  Country: None (occurrence: None)
  Receive Date: 20110615
  Receipt Date: 20110531
  Transmission Date: 20111010
  Serious: Yes (Hospitalization, Other)
  Sender: FDA-Public Use
  Company Number: LTI2011A00124

PATIENT
  Age: 67 Year
  Sex: Male

DRUGS (3)
  1. ASPIRIN [Concomitant]
  2. ACTOPLUS MET [Suspect]
     Indication: TYPE 2 DIABETES MELLITUS
     Dosage: 2 TAB. (1 TAB., 2 IN 1 D) ORAL
     Route: 048
     Dates: start: 20090101, end: 20110519
  3. BIPRETERAX (INDAPAMIDE, PERINDOPRIL ERBUMINE) [Concomitant]

REACTIONS (3)
  - BLADDER TRANSITIONAL CELL CARCINOMA [None]
  - PROSTATE CANCER METASTATIC [None]
  - METASTASES TO URINARY TRACT [None]
